FAERS Safety Report 15244847 (Version 1)
Quarter: 2018Q3

REPORT INFORMATION
  Report Type: Report from Study
  Country: JP (occurrence: JP)
  Receive Date: 20180806
  Receipt Date: 20180806
  Transmission Date: 20181010
  Serious: Yes (Other)
  Sender: FDA-Public Use
  Company Number: JP-PFIZER INC-2018312992

PATIENT

DRUGS (6)
  1. CALCIUM FOLINATE [Suspect]
     Active Substance: LEUCOVORIN CALCIUM
     Indication: COLORECTAL CANCER METASTATIC
     Dosage: 200 MG/M2, CYCLIC (ON DAY 1) REPEATED EVERY 2 WEEKS
  2. CETUXIMAB. [Suspect]
     Active Substance: CETUXIMAB
     Dosage: 250 MG/M2, WEEKLY (FOLLOWED BY WEEKLY INFUSION OF 250 MG/M2 ON DAY 1)
  3. IRINOTECAN HCL [Suspect]
     Active Substance: IRINOTECAN HYDROCHLORIDE
     Indication: COLORECTAL CANCER METASTATIC
     Dosage: UNK UNK, CYCLIC (EVERY 2 WEEKS)
  4. OXALIPLATIN. [Suspect]
     Active Substance: OXALIPLATIN
     Indication: COLORECTAL CANCER METASTATIC
     Dosage: 85 MG/M2, CYCLIC (ON DAY 1) REPEATED EVERY 2 WEEKS
  5. CETUXIMAB. [Suspect]
     Active Substance: CETUXIMAB
     Indication: COLORECTAL CANCER METASTATIC
     Dosage: 400 MG/M2, CYCLIC (INITIATION DOSE)
  6. FLUOROURACIL. [Suspect]
     Active Substance: FLUOROURACIL
     Indication: COLORECTAL CANCER METASTATIC
     Dosage: 3200 MG/M2, CYCLIC (AS A 46?HOUR CONTINUOUS INFUSION STARTING ON DAY 1) REPEATED EVERY 2 WEEKS

REACTIONS (1)
  - Neutropenia [Unknown]
